FAERS Safety Report 6830671-1 (Version None)
Quarter: 2010Q3

REPORT INFORMATION
  Report Type: 
  Country: None (occurrence: None)
  Receive Date: 20100709
  Receipt Date: 20100709
  Transmission Date: 20110219
  Serious: Yes (Hospitalization, Disabling)
  Sender: FDA-Public Use
  Company Number: None

PATIENT
  Age: 16 Year
  Sex: Female
  Weight: 80.7403 kg

DRUGS (2)
  1. ZYPREXA [Suspect]
     Indication: ABNORMAL BEHAVIOUR
     Dosage: 1 TAB MORNING
     Dates: start: 20100527
  2. ZYPREXA [Suspect]
     Dosage: 1 TAB BEDTIME
     Dates: start: 20100527

REACTIONS (1)
  - DIABETES MELLITUS [None]
